FAERS Safety Report 5359112-0 (Version None)
Quarter: 2007Q2

REPORT INFORMATION
  Report Type: 
  Country: None (occurrence: None)
  Receive Date: 20070615
  Receipt Date: 20070607
  Transmission Date: 20071010
  Serious: Yes (Death)
  Sender: FDA-Public Use
  Company Number: HQWYE543308JUN07

PATIENT
  Sex: Male
  Weight: 65.83 kg

DRUGS (3)
  1. PROTONIX [Suspect]
     Indication: GASTROOESOPHAGEAL REFLUX DISEASE
     Route: 048
     Dates: start: 20070325, end: 20070401
  2. SERTRALINE [Concomitant]
     Indication: DEPRESSION
     Dosage: DAILY DOSE UNSPECIFIED
     Route: 048
  3. ACETYLSALICYLIC ACID SRT [Concomitant]
     Route: 048

REACTIONS (1)
  - MYOCARDIAL INFARCTION [None]
